FAERS Safety Report 7329687-0 (Version None)
Quarter: 2011Q1

REPORT INFORMATION
  Report Type: 
  Country: None (occurrence: None)
  Receive Date: 20110223
  Receipt Date: 20110208
  Transmission Date: 20110831
  Serious: Yes (Hospitalization, Other)
  Sender: FDA-Public Use
  Company Number: 1000018888

PATIENT
  Age: 60 Year
  Sex: Female

DRUGS (10)
  1. ATENOLOL [Suspect]
     Dosage: 25 MG (25 MG, 1 IN 1 D)
  2. ZOPICLONE (ZOPICLONE) [Suspect]
     Indication: SLEEP DISORDER
     Dosage: 3.75 MG (3.75 MG, 1 IN 1 D)
  3. DIAZEPAM [Suspect]
  4. DOTHIEPIN (DOTHIEPIN) [Suspect]
     Indication: DEPRESSION
     Dosage: 50 MG (50 MG, 1 IN 1 D)
  5. ACETYLSALICYLIC ACID (ACETYSALICYLIC ACID) [Suspect]
     Dosage: 75 MG (75 MG, 1 IN 1 D)
  6. SIMVASTATIN [Suspect]
     Dosage: 20 MG (20 MG, 1 IN 1 D)
  7. CITALOPRAM HYDROBROMIDE [Suspect]
     Dosage: ORAL
     Route: 048
  8. SERTRALINE HYDROCHLORIDE [Suspect]
     Dosage: 100 MG (100 MG, 1 IN 1 D)
  9. LYRICA [Suspect]
     Indication: GENERALISED ANXIETY DISORDER
     Dosage: (150 MG (50 MG, 3 IN 1 D)) (300 MG (100 MG, 3 IN 1 D)) (200 MG (200 MG, 1 IN 1 D))
     Dates: start: 20100501
  10. PROMETHAZINE [Suspect]
     Indication: ANXIETY
     Dosage: 50 MG (50 MG, 1 IN 1 D)

REACTIONS (43)
  - MUSCLE TWITCHING [None]
  - ANAEMIA [None]
  - PAIN [None]
  - TREMOR [None]
  - DEPRESSED LEVEL OF CONSCIOUSNESS [None]
  - AFFECTIVE DISORDER [None]
  - MUSCLE ATROPHY [None]
  - URINARY TRACT INFECTION [None]
  - SUICIDAL IDEATION [None]
  - CONFUSIONAL STATE [None]
  - MALAISE [None]
  - HYPOCHONDRIASIS [None]
  - AGGRESSION [None]
  - HYPERHIDROSIS [None]
  - VOMITING [None]
  - PANIC ATTACK [None]
  - INITIAL INSOMNIA [None]
  - GENERALISED ANXIETY DISORDER [None]
  - DIZZINESS [None]
  - WEIGHT DECREASED [None]
  - SOMATOFORM DISORDER [None]
  - TENSION [None]
  - DECREASED APPETITE [None]
  - ORAL DISCOMFORT [None]
  - DIARRHOEA [None]
  - MYALGIA [None]
  - ACCIDENTAL OVERDOSE [None]
  - MULTIPLE DRUG OVERDOSE [None]
  - ORAL MUCOSAL DISCOLOURATION [None]
  - THINKING ABNORMAL [None]
  - IRRITABILITY [None]
  - DEPRESSION [None]
  - SYNCOPE [None]
  - DRUG INEFFECTIVE [None]
  - FEELING JITTERY [None]
  - MIDDLE INSOMNIA [None]
  - FALL [None]
  - MACROCYTOSIS [None]
  - HOSTILITY [None]
  - LETHARGY [None]
  - ANXIETY [None]
  - NAUSEA [None]
  - ADJUSTMENT DISORDER [None]
